FAERS Safety Report 5451008-9 (Version None)
Quarter: 2007Q3

REPORT INFORMATION
  Report Type: 
  Country: None (occurrence: None)
  Receive Date: 20070913
  Receipt Date: 20070905
  Transmission Date: 20080115
  Serious: Yes (Hospitalization)
  Sender: FDA-Public Use
  Company Number: US-SOLVAY-00207033964

PATIENT
  Age: 18595 Day
  Sex: Male

DRUGS (3)
  1. ANDROGEL [Suspect]
     Indication: HYPOGONADISM MALE
     Dosage: DAILY DOSE: 5 GRAM(S)
     Route: 062
     Dates: start: 20070825
  2. CAFFEINE SUPPLEMENTS [Suspect]
     Indication: NUTRITIONAL SUPPORT
     Dosage: DAILY DOSE:  UNKNOWN
     Route: 048
  3. 17-HD TEST BOOSTER [Suspect]
     Indication: NUTRITIONAL SUPPORT
     Dosage: DAILY DOSE:  UNKNOWN
     Route: 048

REACTIONS (1)
  - ATRIAL FIBRILLATION [None]
